FAERS Safety Report 6666687-8 (Version None)
Quarter: 2010Q2

REPORT INFORMATION
  Report Type: 
  Country: None (occurrence: None)
  Receive Date: 20100401
  Receipt Date: 20100401
  Transmission Date: 20101027
  Serious: No
  Sender: FDA-Public Use
  Company Number: None

PATIENT
  Age: 45 Year
  Sex: Female

DRUGS (1)
  1. PENICILLAMINE [Suspect]
     Dates: start: 20081219, end: 20090101

REACTIONS (6)
  - ANTIMITOCHONDRIAL ANTIBODY POSITIVE [None]
  - ANTINUCLEAR ANTIBODY POSITIVE [None]
  - CHOLESTASIS [None]
  - HEPATIC FIBROSIS [None]
  - HEPATITIS [None]
  - LIVER INJURY [None]
